FAERS Safety Report 6659439-6 (Version None)
Quarter: 2010Q1

REPORT INFORMATION
  Report Type: 
  Country: None (occurrence: None)
  Receive Date: 20100330
  Receipt Date: 20100323
  Transmission Date: 20100710
  Serious: No
  Sender: FDA-Public Use
  Company Number: US-BIOGENIDEC-2010BI010074

PATIENT
  Sex: Female

DRUGS (3)
  1. TYSABRI [Suspect]
     Indication: MULTIPLE SCLEROSIS
     Route: 042
     Dates: start: 20050221, end: 20050201
  2. TYSABRI [Suspect]
     Route: 042
     Dates: start: 20070720, end: 20071120
  3. TYSABRI [Suspect]
     Route: 042
     Dates: start: 20080304

REACTIONS (2)
  - DRUG INEFFECTIVE [None]
  - PAIN [None]
